FAERS Safety Report 12977773 (Version 3)
Quarter: 2019Q1

REPORT INFORMATION
  Report Type: Report from Study
  Country: BR (occurrence: BR)
  Receive Date: 20161128
  Receipt Date: 20190222
  Transmission Date: 20190417
  Serious: Yes (Life-Threatening, Hospitalization, Other)
  Sender: FDA-Public Use
  Company Number: PHHY2016BR162983

PATIENT
  Age: 91 Year
  Sex: Female
  Weight: 57 kg

DRUGS (5)
  1. TAPAZOLE [Concomitant]
     Active Substance: METHIMAZOLE
     Indication: THYROID DISORDER
     Dosage: 5 MG, UNK
     Route: 065
  2. ACLASTA [Suspect]
     Active Substance: ZOLEDRONIC ACID
     Dosage: 1 DF, Q12MO
     Route: 042
     Dates: start: 201808, end: 201901
  3. TRAMADOL. [Concomitant]
     Active Substance: TRAMADOL
     Indication: PAIN
     Dosage: BEFORE STARTING ACLASTA
     Route: 065
  4. ACLASTA [Suspect]
     Active Substance: ZOLEDRONIC ACID
     Indication: OSTEOPOROSIS
     Dosage: 1 DF, Q12MO
     Route: 042
     Dates: start: 2012
  5. OMEPRAZOLE. [Concomitant]
     Active Substance: OMEPRAZOLE
     Indication: ABDOMINAL DISCOMFORT
     Route: 065

REACTIONS (18)
  - Constipation [Unknown]
  - Concomitant disease aggravated [Recovered/Resolved]
  - Rectal haemorrhage [Unknown]
  - Headache [Recovered/Resolved]
  - Spinal flattening [Not Recovered/Not Resolved]
  - Blood pressure decreased [Unknown]
  - Body height decreased [Not Recovered/Not Resolved]
  - Multiple fractures [Unknown]
  - Gastrointestinal pain [Recovered/Resolved]
  - Mobility decreased [Not Recovered/Not Resolved]
  - Abdominal pain [Recovered/Resolved]
  - Diverticulitis [Recovered/Resolved]
  - Feeling abnormal [Unknown]
  - Pain [Recovered/Resolved]
  - Lumbar vertebral fracture [Not Recovered/Not Resolved]
  - Intervertebral disc disorder [Unknown]
  - Blood pressure increased [Recovered/Resolved]
  - Neck pain [Recovered/Resolved]

NARRATIVE: CASE EVENT DATE: 201812
